FAERS Safety Report 9602277 (Version 1)
Quarter: 2013Q4

REPORT INFORMATION
  Report Type: Spontaneous
  Country: FR (occurrence: FR)
  Receive Date: 20131007
  Receipt Date: 20131007
  Transmission Date: 20140711
  Serious: Yes (Hospitalization)
  Sender: FDA-Public Use
  Company Number: FR-PFIZER INC-2013281721

PATIENT
  Age: 74 Year
  Sex: Male

DRUGS (7)
  1. FLUOROURACILE PFIZER [Suspect]
     Indication: LARYNGEAL SQUAMOUS CELL CARCINOMA
     Dosage: UNK
     Route: 042
     Dates: start: 20130827, end: 20130831
  2. ERBITUX [Concomitant]
  3. SPIRIVA [Concomitant]
  4. CARBOPLATIN HOSPIRA [Concomitant]
  5. ONGLYZA [Concomitant]
  6. PEFCENT [Concomitant]
  7. NOVONORM [Concomitant]

REACTIONS (1)
  - Arteriospasm coronary [Recovered/Resolved]
